FAERS Safety Report 10401802 (Version 8)
Quarter: 2014Q4

REPORT INFORMATION
  Report Type: Spontaneous
  Country: US (occurrence: US)
  Receive Date: 20140822
  Receipt Date: 20141104
  Transmission Date: 20150528
  Serious: Yes (Hospitalization)
  Sender: FDA-Public Use
  Company Number: US-UNITED THERAPEUTICS-UNT-2014-005433

PATIENT
  Age: 56 Year
  Sex: Female
  Weight: 66.21 kg

DRUGS (7)
  1. REMODULIN [Suspect]
     Active Substance: TREPROSTINIL
     Dosage: 0.111 ?G/KG, CONTINUING
     Route: 041
     Dates: start: 20140730
  2. LETAIRIS [Suspect]
     Active Substance: AMBRISENTAN
     Indication: PULMONARY ARTERIAL HYPERTENSION
     Dosage: 10 MG, QD
     Dates: start: 20131205
  3. REMODULIN [Suspect]
     Active Substance: TREPROSTINIL
     Indication: COR PULMONALE CHRONIC
     Dosage: 0.100 ?G/KG, UNK
     Route: 058
     Dates: start: 20120605
  4. REMODULIN [Suspect]
     Active Substance: TREPROSTINIL
     Dosage: 0.100 ?G/KG, CONTINUING
     Route: 058
     Dates: start: 20140729
  5. WARFARIN [Concomitant]
     Active Substance: WARFARIN
     Indication: PRODUCT USED FOR UNKNOWN INDICATION
  6. LETAIRIS [Suspect]
     Active Substance: AMBRISENTAN
     Dosage: 10 MG, QD
     Route: 065
     Dates: start: 20131209
  7. ADCIRCA [Concomitant]
     Active Substance: TADALAFIL
     Indication: PRODUCT USED FOR UNKNOWN INDICATION

REACTIONS (13)
  - Dyspnoea [Recovered/Resolved]
  - Drug intolerance [Recovered/Resolved]
  - Brain natriuretic peptide increased [Recovered/Resolved]
  - Chronic right ventricular failure [Recovered/Resolved]
  - Muscle spasms [Recovered/Resolved]
  - Pulmonary arterial hypertension [Not Recovered/Not Resolved]
  - Infusion site pain [Recovered/Resolved]
  - Cardiac failure acute [Recovered/Resolved]
  - Patient-device incompatibility [Recovered/Resolved]
  - Fluid retention [Recovered/Resolved]
  - Blood creatinine increased [Recovered/Resolved]
  - Skin irritation [Recovered/Resolved]
  - Nausea [Recovered/Resolved]

NARRATIVE: CASE EVENT DATE: 201408
